FAERS Safety Report 23884131 (Version 2)
Quarter: 2024Q2

REPORT INFORMATION
  Report Type: Spontaneous
  Country: IT (occurrence: IT)
  Receive Date: 20240522
  Receipt Date: 20240607
  Transmission Date: 20240715
  Serious: Yes (Hospitalization)
  Sender: FDA-Public Use
  Company Number: IT-TEVA-VS-3200394

PATIENT
  Sex: Male

DRUGS (1)
  1. BUSULFAN [Suspect]
     Active Substance: BUSULFAN
     Indication: Product used for unknown indication
     Route: 065

REACTIONS (1)
  - Pulmonary toxicity [Recovering/Resolving]
